FAERS Safety Report 19748689 (Version 1)
Quarter: 2021Q3

REPORT INFORMATION
  Report Type: Spontaneous
  Country: US (occurrence: US)
  Receive Date: 20210825
  Receipt Date: 20210825
  Transmission Date: 20211014
  Serious: Yes (Hospitalization)
  Sender: FDA-Public Use
  Company Number: None

PATIENT
  Age: 53 Year
  Sex: Male

DRUGS (6)
  1. HUMALOG [Concomitant]
     Active Substance: INSULIN LISPRO
     Dates: start: 20210421
  2. GAMUNEX?C [Suspect]
     Active Substance: HUMAN IMMUNOGLOBULIN G
     Indication: HYPERCOAGULATION
     Dosage: ?          OTHER FREQUENCY:EVERY 2 WEEKS;?
     Route: 042
     Dates: start: 20210430
  3. ELIQUIS [Concomitant]
     Active Substance: APIXABAN
     Dates: start: 20210421
  4. LIPITOR [Concomitant]
     Active Substance: ATORVASTATIN CALCIUM
     Dates: start: 20210421
  5. LANTUS [Concomitant]
     Active Substance: INSULIN GLARGINE
     Dates: start: 20210421
  6. LISINOPRIL. [Concomitant]
     Active Substance: LISINOPRIL
     Dates: start: 20210421

REACTIONS (1)
  - Pharyngeal swelling [None]

NARRATIVE: CASE EVENT DATE: 20210824
